FAERS Safety Report 8356314-6 (Version None)
Quarter: 2012Q2

REPORT INFORMATION
  Report Type: 
  Country: None (occurrence: None)
  Receive Date: 20120510
  Receipt Date: 20120426
  Transmission Date: 20120825
  Serious: Yes (Other)
  Sender: FDA-Public Use
  Company Number: NGX_01076_2012

PATIENT
  Sex: Female

DRUGS (1)
  1. QUTENZA [Suspect]
     Indication: NEURALGIA
     Dosage: (DF [AT THE FOOT] TOPICAL)
     Route: 061

REACTIONS (2)
  - COMPLEX REGIONAL PAIN SYNDROME [None]
  - DISEASE RECURRENCE [None]
